FAERS Safety Report 10590077 (Version 1)
Quarter: 2014Q4

REPORT INFORMATION
  Report Type: Spontaneous
  Country: AE (occurrence: None)
  Receive Date: 20141117
  Receipt Date: 20141117
  Transmission Date: 20150529
  Serious: Yes (Other)
  Sender: FDA-Public Use
  Company Number: None

PATIENT
  Age: 28 Year
  Sex: Female
  Weight: 59 kg

DRUGS (1)
  1. GEMIFLOXACIN [Suspect]
     Active Substance: GEMIFLOXACIN
     Indication: PNEUMONIA MYCOPLASMAL
     Dosage: ONE DAILY FOR 7 DAYS, ONCE DAILY, TAKEN BY MOUTH
     Route: 048

REACTIONS (3)
  - Hypersensitivity [None]
  - Myalgia [None]
  - Musculoskeletal stiffness [None]

NARRATIVE: CASE EVENT DATE: 20141114
